FAERS Safety Report 7487637-0 (Version None)
Quarter: 2011Q2

REPORT INFORMATION
  Report Type: 
  Country: None (occurrence: None)
  Receive Date: 20110518
  Receipt Date: 20091120
  Transmission Date: 20111010
  Serious: Yes (Other)
  Sender: FDA-Public Use
  Company Number: US-BAYER-200940873NA

PATIENT
  Age: 58 Year
  Sex: Male
  Weight: 81 kg

DRUGS (13)
  1. LIPITOR [Concomitant]
  2. ALLOPURINOL [Concomitant]
  3. VERSED [Concomitant]
  4. MAGNESIUM SULFATE [Concomitant]
  5. HEPARIN [Concomitant]
  6. LOPRESSOR [Concomitant]
  7. SOLU-MEDROL [Concomitant]
  8. REGLAN [Concomitant]
  9. ACCUPRIL [Concomitant]
  10. ROCURONIUM BROMIDE [Concomitant]
  11. TRASYLOL [Suspect]
     Indication: CORONARY ARTERY BYPASS
  12. PLAVIX [Concomitant]
  13. GLIPIZIDE [Concomitant]

REACTIONS (11)
  - DEPRESSION [None]
  - INJURY [None]
  - FEAR [None]
  - ANHEDONIA [None]
  - RENAL FAILURE [None]
  - ANXIETY [None]
  - MULTI-ORGAN FAILURE [None]
  - UNEVALUABLE EVENT [None]
  - DISABILITY [None]
  - RENAL INJURY [None]
  - PAIN [None]
